FAERS Safety Report 7552916-5 (Version None)
Quarter: 2011Q2

REPORT INFORMATION
  Report Type: 
  Country: None (occurrence: None)
  Receive Date: 20110616
  Receipt Date: 20101018
  Transmission Date: 20111010
  Serious: No
  Sender: FDA-Public Use
  Company Number: US-ASTRAZENECA-2010SE49228

PATIENT
  Age: 76 Year
  Sex: Female

DRUGS (1)
  1. FASLODEX [Suspect]
     Indication: NEOPLASM MALIGNANT
     Route: 030
     Dates: start: 20101012

REACTIONS (4)
  - RASH [None]
  - FATIGUE [None]
  - BACK PAIN [None]
  - HERPES ZOSTER [None]
